FAERS Safety Report 18405783 (Version 1)
Quarter: 2020Q4

REPORT INFORMATION
  Report Type: Spontaneous
  Country: US (occurrence: US)
  Receive Date: 20201020
  Receipt Date: 20201020
  Transmission Date: 20210114
  Serious: Yes (Other)
  Sender: FDA-Public Use
  Company Number: US-INSUD PHARMA-2010US00234

PATIENT

DRUGS (1)
  1. TESTOSTERONE. [Suspect]
     Active Substance: TESTOSTERONE
     Indication: TRANSGENDER HORMONAL THERAPY
     Dosage: TESTOSTERONE CYPIONATE 100MG IM WEEKLY
     Route: 030

REACTIONS (3)
  - Papule [Recovering/Resolving]
  - Angiofibroma [Recovering/Resolving]
  - Skin lesion [Recovering/Resolving]
